FAERS Safety Report 16976204 (Version 1)
Quarter: 2019Q4

REPORT INFORMATION
  Report Type: Report from Study
  Country: AR (occurrence: AR)
  Receive Date: 20191030
  Receipt Date: 20191030
  Transmission Date: 20200122
  Serious: Yes (Death, Hospitalization, Other)
  Sender: FDA-Public Use
  Company Number: AR-BRISTOL-MYERS SQUIBB COMPANY-BMS-2019-103099

PATIENT
  Age: 67 Year
  Sex: Female

DRUGS (1)
  1. APIXABAN [Suspect]
     Active Substance: APIXABAN
     Indication: PRODUCT USED FOR UNKNOWN INDICATION
     Dosage: 5 MILLIGRAM
     Route: 065
     Dates: start: 20190916

REACTIONS (5)
  - Diverticulum [Unknown]
  - Gastrointestinal haemorrhage [Unknown]
  - Nosocomial infection [Unknown]
  - Cardiac failure [Fatal]
  - Gastritis [Unknown]

NARRATIVE: CASE EVENT DATE: 20191014
